FAERS Safety Report 15876603 (Version 2)
Quarter: 2019Q1

REPORT INFORMATION
  Report Type: Spontaneous
  Country: US (occurrence: US)
  Receive Date: 20190127
  Receipt Date: 20190220
  Transmission Date: 20190417
  Serious: No
  Sender: FDA-Public Use
  Company Number: US-JNJFOC-20190104304

PATIENT
  Sex: Female
  Weight: 69.4 kg

DRUGS (6)
  1. BACLOFEN. [Concomitant]
     Active Substance: BACLOFEN
     Indication: BREAKTHROUGH PAIN
     Dosage: TWICE A DAY AS NEEDED
     Route: 048
  2. PRILOSEC [Concomitant]
     Active Substance: OMEPRAZOLE MAGNESIUM
     Indication: GASTRIC DISORDER
     Route: 048
  3. DURAGESIC [Suspect]
     Active Substance: FENTANYL
     Indication: PAIN
     Dosage: STARTED DRUG IN LATE 1990S
     Route: 062
     Dates: start: 1990
  4. ZYRTEC [Concomitant]
     Active Substance: CETIRIZINE HYDROCHLORIDE
     Indication: MULTIPLE ALLERGIES
     Route: 048
  5. OXYCODONE [Concomitant]
     Active Substance: OXYCODONE
     Indication: BREAKTHROUGH PAIN
     Dosage: EVERY 4-5 HOURS AS NEEDED
     Route: 048
  6. GAS-X [Concomitant]
     Active Substance: DIMETHICONE
     Indication: FLATULENCE
     Dosage: AS NEEDED
     Route: 048

REACTIONS (4)
  - Dizziness [Unknown]
  - Product adhesion issue [Unknown]
  - Somnolence [Unknown]
  - Product colour issue [Unknown]
